FAERS Safety Report 23538536 (Version 1)
Quarter: 2024Q1

REPORT INFORMATION
  Report Type: Spontaneous
  Country: FR (occurrence: FR)
  Receive Date: 20240219
  Receipt Date: 20240219
  Transmission Date: 20240410
  Serious: Yes (Other)
  Sender: FDA-Public Use
  Company Number: None

PATIENT
  Age: 53 Year
  Sex: Male
  Weight: 73 kg

DRUGS (4)
  1. PROPECIA [Suspect]
     Active Substance: FINASTERIDE
     Indication: Diffuse alopecia
     Dosage: 1MG PER DAY
     Route: 002
     Dates: start: 20041005, end: 20160802
  2. NEURONTIN [Concomitant]
     Active Substance: GABAPENTIN
     Indication: Pudendal canal syndrome
     Dosage: UNK
     Route: 048
  3. CIALIS [Concomitant]
     Active Substance: TADALAFIL
     Indication: Erectile dysfunction
     Dosage: UNK
     Route: 048
  4. PENTASA [Concomitant]
     Active Substance: MESALAMINE
     Indication: Gastrointestinal disorder
     Dosage: UNK
     Route: 048

REACTIONS (3)
  - Ejaculation disorder [Not Recovered/Not Resolved]
  - Erectile dysfunction [Not Recovered/Not Resolved]
  - Pudendal canal syndrome [Not Recovered/Not Resolved]

NARRATIVE: CASE EVENT DATE: 20100802
